FAERS Safety Report 15365831 (Version 1)
Quarter: 2018Q3

REPORT INFORMATION
  Report Type: Spontaneous
  Country: US (occurrence: US)
  Receive Date: 20180831
  Receipt Date: 20180831
  Transmission Date: 20181010
  Serious: Yes (Life-Threatening, Disabling)
  Sender: FDA-Public Use
  Company Number: None

PATIENT
  Age: 35 Year
  Sex: Female
  Weight: 101.25 kg

DRUGS (7)
  1. PRIMADOPHILUS OPTIMA (NATURE^S WAY) ACTIVE HDA PROBIOTICS [Concomitant]
  2. LORAZEPAN [Concomitant]
     Active Substance: LORAZEPAM
  3. TOPIRAMATE 25MG TABLETS [Suspect]
     Active Substance: TOPIRAMATE
     Indication: DEPRESSION
     Dosage: ?          OTHER FREQUENCY:DON^T REMEMBER. DR;?
     Route: 048
     Dates: end: 20171216
  4. NORCO [Concomitant]
     Active Substance: ACETAMINOPHEN\HYDROCODONE BITARTRATE
  5. ZYRTEC [Concomitant]
     Active Substance: CETIRIZINE HYDROCHLORIDE
  6. TOPIRAMATE 25MG TABLETS [Suspect]
     Active Substance: TOPIRAMATE
     Indication: PAIN
     Dosage: ?          OTHER FREQUENCY:DON^T REMEMBER. DR;?
     Route: 048
     Dates: end: 20171216
  7. MICROGESTIN FE [Concomitant]
     Active Substance: ETHINYL ESTRADIOL\FERROUS FUMARATE\NORETHINDRONE ACETATE

REACTIONS (12)
  - Irritability [None]
  - Hallucination, auditory [None]
  - Depression [None]
  - Amnesia [None]
  - Paranoia [None]
  - Derealisation [None]
  - Social problem [None]
  - Histrionic personality disorder [None]
  - Anger [None]
  - Suicidal ideation [None]
  - Crying [None]
  - Thinking abnormal [None]

NARRATIVE: CASE EVENT DATE: 20171014
